FAERS Safety Report 14254451 (Version 2)
Quarter: 2017Q4

REPORT INFORMATION
  Report Type: Spontaneous
  Country: CA (occurrence: CA)
  Receive Date: 20171205
  Receipt Date: 20171226
  Transmission Date: 20180321
  Serious: Yes (Death)
  Sender: FDA-Public Use
  Company Number: CA-PFIZER INC-2017447649

PATIENT
  Age: 54 Year
  Sex: Male

DRUGS (1)
  1. SUTENT [Suspect]
     Active Substance: SUNITINIB MALATE
     Indication: METASTATIC RENAL CELL CARCINOMA
     Dosage: 50 MG, CYCLIC (PO DAILY FOR 4 WEEKS FOLLOWED BY 2 WEEKS OFF)
     Route: 048
     Dates: start: 20171014, end: 20171129

REACTIONS (1)
  - Death [Fatal]

NARRATIVE: CASE EVENT DATE: 20171129
